FAERS Safety Report 6054588-8 (Version None)
Quarter: 2009Q1

REPORT INFORMATION
  Report Type: 
  Country: None (occurrence: None)
  Receive Date: 20090127
  Receipt Date: 20090115
  Transmission Date: 20090719
  Serious: Yes (Hospitalization)
  Sender: FDA-Public Use
  Company Number: JP-ABBOTT-09P-087-0499876-00

PATIENT
  Age: 74 Year
  Sex: Male

DRUGS (4)
  1. LEUPROLIDE ACETATE [Suspect]
     Indication: PROSTATE CANCER STAGE IV
     Dates: start: 20070116
  2. LEUPROLIDE ACETATE [Suspect]
     Indication: PROSTATE CANCER STAGE IV
     Dates: start: 20061219
  3. CASODEX [Concomitant]
     Indication: PROSTATE CANCER STAGE IV
     Route: 048
  4. YAKUBAN [Concomitant]
     Indication: SPINAL OSTEOARTHRITIS
     Dosage: OPTIMAL DOSE
     Route: 062
     Dates: start: 20070501, end: 20070530

REACTIONS (1)
  - CEREBELLAR INFARCTION [None]
